FAERS Safety Report 12938292 (Version 2)
Quarter: 2016Q4

REPORT INFORMATION
  Report Type: Report from Study
  Country: US (occurrence: US)
  Receive Date: 20161114
  Receipt Date: 20161220
  Transmission Date: 20170207
  Serious: Yes (Hospitalization)
  Sender: FDA-Public Use
  Company Number: US-009507513-1611USA005144

PATIENT
  Age: 60 Year
  Sex: Male

DRUGS (3)
  1. POMALYST [Suspect]
     Active Substance: POMALIDOMIDE
     Indication: PLASMA CELL MYELOMA
     Dosage: 4 MG, UNK
     Route: 042
     Dates: start: 201604
  2. DEXAMETHASONE. [Suspect]
     Active Substance: DEXAMETHASONE
     Indication: PLASMA CELL MYELOMA
     Dosage: 40 MG, QOW
     Route: 042
     Dates: start: 201604
  3. PEMBROLIZUMAB. [Suspect]
     Active Substance: PEMBROLIZUMAB
     Indication: PLASMA CELL MYELOMA
     Dosage: 200 MG, QW
     Route: 042
     Dates: start: 201604

REACTIONS (4)
  - Pyrexia [Recovered/Resolved]
  - Neutropenia [Unknown]
  - Muscle spasms [Recovering/Resolving]
  - Rash [Unknown]

NARRATIVE: CASE EVENT DATE: 2016
